FAERS Safety Report 9020302 (Version 1)
Quarter: 2013Q1

REPORT INFORMATION
  Report Type: Spontaneous
  Country: US (occurrence: US)
  Receive Date: 20130119
  Receipt Date: 20130119
  Transmission Date: 20140127
  Serious: No
  Sender: FDA-Public Use
  Company Number: US-ALLERGAN-1209299US

PATIENT
  Age: 22 None
  Sex: Male

DRUGS (20)
  1. BOTOX? [Suspect]
     Indication: HEMIPARESIS
     Dosage: 30 UNITS, SINGLE
     Route: 030
     Dates: start: 20120703, end: 20120703
  2. BOTOX? [Suspect]
     Indication: MONOPARESIS
     Dosage: 40 UNK, UNK
     Route: 030
     Dates: start: 20120703, end: 20120703
  3. BOTOX? [Suspect]
     Indication: MONOPARESIS
     Dosage: 40 UNK, UNK
     Route: 030
     Dates: start: 20120703, end: 20120703
  4. BOTOX? [Suspect]
     Dosage: 40 UNK, UNK
     Route: 030
     Dates: start: 20120703, end: 20120703
  5. BOTOX? [Suspect]
     Dosage: 60 UNK, UNK
     Route: 030
     Dates: start: 20120703, end: 20120703
  6. BOTOX? [Suspect]
     Dosage: 30 UNK, UNK
     Route: 030
     Dates: start: 20120703, end: 20120703
  7. BOTOX? [Suspect]
     Dosage: 60 UNK, UNK
     Route: 030
     Dates: start: 20120703, end: 20120703
  8. BOTOX? [Suspect]
     Dosage: 30 UNK, UNK
     Route: 030
     Dates: start: 20120703, end: 20120703
  9. BOTOX? [Suspect]
     Dosage: 30 UNK, UNK
     Route: 030
     Dates: start: 20120703, end: 20120703
  10. BOTOX? [Suspect]
     Dosage: 30 UNK, UNK
     Route: 030
     Dates: start: 20120703, end: 20120703
  11. BOTOX? [Suspect]
     Dosage: 30 UNK, UNK
     Route: 030
     Dates: start: 20120703, end: 20120703
  12. BOTOX? [Suspect]
     Dosage: 10 UNK, UNK
     Route: 030
     Dates: start: 20120703, end: 20120703
  13. BOTOX? [Suspect]
     Dosage: 10 UNK, UNK
     Route: 030
     Dates: start: 20120703, end: 20120703
  14. ABILIFY [Concomitant]
     Indication: PRODUCT USED FOR UNKNOWN INDICATION
     Dosage: UNK
  15. DEPAKOTE [Concomitant]
     Indication: PRODUCT USED FOR UNKNOWN INDICATION
     Dosage: UNK
  16. CALCIUM [Concomitant]
     Indication: SUPPLEMENTATION THERAPY
     Dosage: UNK
     Route: 048
  17. VITAMIN D /00107901/ [Concomitant]
     Indication: SUPPLEMENTATION THERAPY
     Dosage: UNK
     Route: 048
  18. MULTIVITAMIN                       /00097801/ [Concomitant]
     Indication: SUPPLEMENTATION THERAPY
     Dosage: UNK
     Route: 048
  19. SERTRALINE [Concomitant]
     Indication: PRODUCT USED FOR UNKNOWN INDICATION
     Dosage: UNK
  20. CARBATROL [Concomitant]
     Indication: PRODUCT USED FOR UNKNOWN INDICATION
     Dosage: UNK

REACTIONS (2)
  - Face oedema [Recovering/Resolving]
  - Lethargy [Recovering/Resolving]
